FAERS Safety Report 14095975 (Version 2)
Quarter: 2017Q4

REPORT INFORMATION
  Report Type: Spontaneous
  Country: US (occurrence: US)
  Receive Date: 20171017
  Receipt Date: 20171030
  Transmission Date: 20180321
  Serious: Yes (Hospitalization)
  Sender: FDA-Public Use
  Company Number: US-FRESENIUS MEDICAL CARE RENAL THERAPIES GROUP-FMC-1710-001203

PATIENT
  Sex: Female
  Weight: 81.7 kg

DRUGS (30)
  1. LORAZEPAM. [Concomitant]
     Active Substance: LORAZEPAM
  2. NORVASC [Concomitant]
     Active Substance: AMLODIPINE BESYLATE
  3. ESZOPICLONE. [Concomitant]
     Active Substance: ESZOPICLONE
  4. GOLYTELY [Concomitant]
     Active Substance: POLYETHYLENE GLYCOL 3350\POTASSIUM CHLORIDE\SODIUM BICARBONATE\SODIUM CHLORIDE\SODIUM SULFATE ANHYDROUS
  5. ISOSORBIDE MONONITRATE. [Concomitant]
     Active Substance: ISOSORBIDE MONONITRATE
  6. BUDESONIDE. [Concomitant]
     Active Substance: BUDESONIDE
  7. CALCITRIOL. [Concomitant]
     Active Substance: CALCITRIOL
  8. CLONIDINE. [Concomitant]
     Active Substance: CLONIDINE
  9. LANTUS SOLOSTAR [Concomitant]
     Active Substance: INSULIN GLARGINE
  10. LIDODERM [Concomitant]
     Active Substance: LIDOCAINE
  11. SODIUM BICARBONATE. [Concomitant]
     Active Substance: SODIUM BICARBONATE
  12. DULERA [Concomitant]
     Active Substance: FORMOTEROL FUMARATE DIHYDRATE\MOMETASONE FUROATE
  13. FLUTICASONE. [Concomitant]
     Active Substance: FLUTICASONE
  14. GABAPENTIN. [Concomitant]
     Active Substance: GABAPENTIN
  15. LABETALOL [Concomitant]
     Active Substance: LABETALOL\LABETALOL HYDROCHLORIDE
  16. LEVAQUIN [Concomitant]
     Active Substance: LEVOFLOXACIN
  17. SIMETHICONE (DIMETHICONE) [Concomitant]
     Active Substance: DIMETHICONE
  18. DELFLEX [Suspect]
     Active Substance: CALCIUM CHLORIDE\DEXTROSE\MAGNESIUM CHLORIDE\SODIUM CHLORIDE\SODIUM LACTATE
     Indication: END STAGE RENAL DISEASE
     Route: 033
  19. ATORVASTATIN [Concomitant]
     Active Substance: ATORVASTATIN
  20. CALCIUM ACETATE. [Concomitant]
     Active Substance: CALCIUM ACETATE
  21. CETIRIZINE [Concomitant]
     Active Substance: CETIRIZINE HYDROCHLORIDE
  22. DIVALPROEX SODIUM. [Concomitant]
     Active Substance: DIVALPROEX SODIUM
  23. HUMALOG [Concomitant]
     Active Substance: INSULIN LISPRO
  24. LEVEMIR [Concomitant]
     Active Substance: INSULIN DETEMIR
  25. MEDROL [Concomitant]
     Active Substance: METHYLPREDNISOLONE
  26. PROVENTIL [Concomitant]
     Active Substance: ALBUTEROL
  27. CHOLESTYRAMINE. [Concomitant]
     Active Substance: CHOLESTYRAMINE
  28. MAGNESIUM SULFATE. [Concomitant]
     Active Substance: MAGNESIUM SULFATE
  29. PEPCID [Concomitant]
     Active Substance: FAMOTIDINE
  30. PLAVIX [Concomitant]
     Active Substance: CLOPIDOGREL BISULFATE

REACTIONS (2)
  - Chronic obstructive pulmonary disease [Recovered/Resolved]
  - Blood glucose increased [Unknown]
